FAERS Safety Report 8388547-7 (Version None)
Quarter: 2012Q2

REPORT INFORMATION
  Report Type: 
  Country: None (occurrence: None)
  Receive Date: 20120525
  Receipt Date: 20120515
  Transmission Date: 20120825
  Serious: No
  Sender: FDA-Public Use
  Company Number: US-ASTRAZENECA-2012SE31606

PATIENT
  Age: 52 Year
  Sex: Male
  Weight: 77.1 kg

DRUGS (9)
  1. NEXIUM [Suspect]
     Route: 048
  2. LEXAPRO [Concomitant]
  3. ABILIFY [Concomitant]
  4. ALBUTEROL [Concomitant]
  5. SINGULAIR [Concomitant]
  6. LUVOX [Concomitant]
  7. PHENERGAN [Concomitant]
  8. PRISTIQ [Concomitant]
  9. PROVENTIL [Concomitant]

REACTIONS (2)
  - OFF LABEL USE [None]
  - ASTHMA [None]
